FAERS Safety Report 16989199 (Version 3)
Quarter: 2019Q4

REPORT INFORMATION
  Report Type: Report from Study
  Country: None (occurrence: FR)
  Receive Date: 20191104
  Receipt Date: 20191202
  Transmission Date: 20200122
  Serious: Yes (Other)
  Sender: FDA-Public Use
  Company Number: FR-ABBVIE-18K-056-2607603-00

PATIENT
  Age: 77 Year
  Sex: Male
  Weight: 104 kg

DRUGS (19)
  1. VENCLYXTO [Suspect]
     Active Substance: VENETOCLAX
     Indication: CHRONIC LYMPHOCYTIC LEUKAEMIA
     Route: 048
     Dates: start: 20181025, end: 20181031
  2. FASTURTEC [Concomitant]
     Active Substance: RASBURICASE
     Indication: PROPHYLAXIS
     Dates: start: 20181024, end: 20181024
  3. LACTULOSE. [Concomitant]
     Active Substance: LACTULOSE
     Indication: CONSTIPATION
     Dates: start: 201811
  4. ALLOPURINOL. [Concomitant]
     Active Substance: ALLOPURINOL
     Indication: PROPHYLAXIS
     Dates: start: 2019
  5. VENCLYXTO [Suspect]
     Active Substance: VENETOCLAX
     Route: 048
     Dates: start: 20181101, end: 20181107
  6. VENCLYXTO [Suspect]
     Active Substance: VENETOCLAX
     Route: 048
     Dates: start: 20181115, end: 20181121
  7. VENCLYXTO [Suspect]
     Active Substance: VENETOCLAX
     Route: 048
     Dates: start: 20181214, end: 201906
  8. VENCLYXTO [Suspect]
     Active Substance: VENETOCLAX
     Route: 048
     Dates: start: 201906
  9. LEDERFOLINE [Concomitant]
     Active Substance: LEUCOVORIN CALCIUM
     Indication: ANAEMIA PROPHYLAXIS
     Dates: start: 200703
  10. GAMMAGLOBULINE [Concomitant]
     Indication: HYPOGAMMAGLOBULINAEMIA
     Dates: start: 20130206
  11. VENCLYXTO [Suspect]
     Active Substance: VENETOCLAX
     Route: 048
     Dates: start: 20181122, end: 20181213
  12. PRIMPERAN [Concomitant]
     Active Substance: METOCLOPRAMIDE HYDROCHLORIDE
     Indication: PROPHYLAXIS OF NAUSEA AND VOMITING
     Dates: start: 20181025
  13. TRAMADOL. [Concomitant]
     Active Substance: TRAMADOL
     Indication: PAIN
     Dosage: IF NECESSARY
     Dates: start: 20181123
  14. CRESTOR [Concomitant]
     Active Substance: ROSUVASTATIN CALCIUM
     Indication: HYPERCHOLESTEROLAEMIA
     Dates: start: 201611
  15. TOPALGIC [Concomitant]
     Indication: PAIN
     Dosage: IF NECESSARY
     Dates: start: 20181102
  16. BACTRIM [Concomitant]
     Active Substance: SULFAMETHOXAZOLE\TRIMETHOPRIM
     Indication: INFECTION PROPHYLAXIS
     Dates: start: 20060816
  17. ALLOPURINOL. [Concomitant]
     Active Substance: ALLOPURINOL
     Indication: PROPHYLAXIS
  18. VENCLYXTO [Suspect]
     Active Substance: VENETOCLAX
     Route: 048
     Dates: start: 20181108, end: 20181114
  19. ZELITREX [Concomitant]
     Active Substance: VALACYCLOVIR HYDROCHLORIDE
     Indication: INFECTION PROPHYLAXIS
     Dates: start: 20060816

REACTIONS (12)
  - Pollakiuria [Not Recovered/Not Resolved]
  - Diarrhoea [Recovered/Resolved]
  - Gout [Recovering/Resolving]
  - Diarrhoea [Recovered/Resolved]
  - Blood uric acid increased [Not Recovered/Not Resolved]
  - Hypocalcaemia [Recovered/Resolved]
  - Constipation [Recovered/Resolved]
  - Neutropenia [Recovered/Resolved]
  - Squamous cell carcinoma [Recovered/Resolved]
  - Hyperuricaemia [Recovered/Resolved]
  - Pain in extremity [Not Recovered/Not Resolved]
  - Gout [Recovered/Resolved]

NARRATIVE: CASE EVENT DATE: 20181026
